FAERS Safety Report 5451567-6 (Version None)
Quarter: 2007Q3

REPORT INFORMATION
  Report Type: 
  Country: None (occurrence: None)
  Receive Date: 20070913
  Receipt Date: 20070913
  Transmission Date: 20080115
  Serious: Yes (Hospitalization)
  Sender: FDA-Public Use
  Company Number: GB-ROXANE LABORATORIES, INC-2007-DE-05381GD

PATIENT
  Age: 26 Year
  Sex: Male

DRUGS (5)
  1. PARACETAMOL [Suspect]
  2. PARACETAMOL [Suspect]
  3. CODEINE SUL TAB [Suspect]
     Route: 048
  4. BENZODIAZEPINE [Suspect]
     Route: 048
  5. ECSTASY [Suspect]
     Route: 048

REACTIONS (2)
  - LIVER DISORDER [None]
  - OVERDOSE [None]
